FAERS Safety Report 8963992 (Version 1)
Quarter: 2012Q4

REPORT INFORMATION
  Report Type: 
  Country: JP (occurrence: JP)
  Receive Date: 20121214
  Receipt Date: 20121214
  Transmission Date: 20130627
  Serious: Yes (Death, Life-Threatening, Hospitalization, Other)
  Sender: FDA-Public Use
  Company Number: JP-AMGEN-JPNSP2012070224

PATIENT
  Age: 71 Year
  Sex: Female
  Weight: 46 kg

DRUGS (3)
  1. ENBREL [Suspect]
     Indication: RHEUMATOID ARTHRITIS
     Dosage: 25 mg, weekly
     Route: 058
     Dates: start: 20080303
  2. ENBREL [Suspect]
     Dosage: 25 mg, weekly
     Route: 058
     Dates: start: 20120126, end: 20120620
  3. TACROLIMUS [Concomitant]
     Dosage: UNK
     Dates: start: 20120406

REACTIONS (8)
  - Urinary tract infection [Unknown]
  - Liver disorder [Unknown]
  - Lymphopenia [Unknown]
  - Hypocomplementaemia [Unknown]
  - Pleural effusion [Unknown]
  - Meningitis bacterial [Fatal]
  - Lupus-like syndrome [Recovered/Resolved]
  - Pertussis [Recovered/Resolved]
